FAERS Safety Report 9291861 (Version 2)
Quarter: 2013Q2

REPORT INFORMATION
  Report Type: Spontaneous
  Country: US (occurrence: US)
  Receive Date: 20130516
  Receipt Date: 20130621
  Transmission Date: 20140414
  Serious: No
  Sender: FDA-Public Use
  Company Number: US-BIOGENIDEC-2013BI043145

PATIENT
  Age: 71 Year
  Sex: Female

DRUGS (1)
  1. TYSABRI [Suspect]
     Indication: MULTIPLE SCLEROSIS
     Route: 042
     Dates: start: 20080701, end: 20130429

REACTIONS (8)
  - Visual impairment [Not Recovered/Not Resolved]
  - Panic attack [Recovered/Resolved]
  - Migraine [Recovered/Resolved]
  - Coagulation time prolonged [Unknown]
  - Mobility decreased [Not Recovered/Not Resolved]
  - Infusion site discolouration [Not Recovered/Not Resolved]
  - Paraesthesia [Unknown]
  - Hypotension [Unknown]
